FAERS Safety Report 16226358 (Version 1)
Quarter: 2019Q2

REPORT INFORMATION
  Report Type: Report from Study
  Country: US (occurrence: US)
  Receive Date: 20190423
  Receipt Date: 20190423
  Transmission Date: 20190711
  Serious: Yes (Death, Hospitalization)
  Sender: FDA-Public Use
  Company Number: US-JNJFOC-20190431693

PATIENT
  Age: 34 Year
  Sex: Male

DRUGS (2)
  1. LOPERAMIDE [Suspect]
     Active Substance: LOPERAMIDE
     Route: 048
  2. LOPERAMIDE [Suspect]
     Active Substance: LOPERAMIDE
     Indication: PRODUCT USED FOR UNKNOWN INDICATION
     Route: 048

REACTIONS (6)
  - Drug abuse [Fatal]
  - Toxicity to various agents [Fatal]
  - Ventricular tachycardia [Unknown]
  - Electrocardiogram QT prolonged [Fatal]
  - Ventricular fibrillation [Unknown]
  - Encephalopathy [Fatal]
